FAERS Safety Report 7771432 (Version 10)
Quarter: 2013Q2

REPORT INFORMATION
  Report Type: Report from Study
  Country: US (occurrence: US)
  Receive Date: 20110124
  Receipt Date: 20130522
  Transmission Date: 20140414
  Serious: Yes (Death, Life-Threatening, Hospitalization, Other)
  Sender: FDA-Public Use
  Company Number: US-ACTELION-A-NJ2008-20746

PATIENT
  Age: 64 Year
  Sex: Female
  Weight: 40 kg

DRUGS (24)
  1. TRACLEER [Suspect]
     Indication: PULMONARY ARTERIAL HYPERTENSION
     Dosage: 125 MG, BID
     Route: 048
     Dates: start: 20080701, end: 20130507
  2. TRACLEER [Suspect]
     Dosage: 62.5 MG, BID
     Route: 048
     Dates: start: 20080429, end: 20080630
  3. FLOLAN [Concomitant]
     Dosage: UNK
     Dates: end: 20130507
  4. REVATIO [Concomitant]
  5. WARFARIN [Concomitant]
  6. FLUTICASONE [Concomitant]
  7. CYANOCOBALAMIN [Concomitant]
  8. IMODIUM [Concomitant]
  9. TEMAZEPAM [Concomitant]
  10. ASPERCREME [Concomitant]
  11. AYR SALINE [Concomitant]
  12. REFRESH TEARS LUBRICANT [Concomitant]
  13. MUCINEX [Concomitant]
  14. FERROUS SULFATE [Concomitant]
  15. LEVOXYL [Concomitant]
  16. ALENDRONATE SODIUM [Concomitant]
  17. CALCIUM CARBONATE [Concomitant]
  18. LORATADINE [Concomitant]
  19. TYLENOL [Concomitant]
  20. POTASSIUM CHLORIDE [Concomitant]
  21. OMEPRAZOLE [Concomitant]
  22. ETHACRYNIC ACID [Concomitant]
  23. CENTRUM SILVER [Concomitant]
  24. CALTRATE WITH VITAMIN D [Concomitant]

REACTIONS (17)
  - Cardiac failure [Fatal]
  - Haemorrhage [Recovered/Resolved]
  - Transfusion [Recovered/Resolved]
  - Gastrointestinal haemorrhage [Not Recovered/Not Resolved]
  - Anaemia [Recovering/Resolving]
  - Haemoglobin decreased [Recovering/Resolving]
  - Fatigue [Recovering/Resolving]
  - Tachycardia [Recovering/Resolving]
  - Dyspnoea [Recovering/Resolving]
  - Iron deficiency anaemia [Unknown]
  - Rheumatoid arthritis [Unknown]
  - Ocular discomfort [Unknown]
  - Abnormal loss of weight [Unknown]
  - Nasal inflammation [Unknown]
  - Dyspnoea [Unknown]
  - Flushing [Recovered/Resolved]
  - Fatigue [Unknown]
